FAERS Safety Report 9793141 (Version 1)
Quarter: 2013Q4

REPORT INFORMATION
  Report Type: Spontaneous
  Country: CH (occurrence: None)
  Receive Date: 20131230
  Receipt Date: 20131230
  Transmission Date: 20140711
  Serious: Yes (Hospitalization)
  Sender: FDA-Public Use
  Company Number: 20130744

PATIENT
  Age: 31 Year
  Sex: Female
  Weight: 37 kg

DRUGS (5)
  1. FERINJECT (FERRIC CARBOXYMALTOSE-VIFOR) [Suspect]
     Indication: IRON DEFICIENCY ANAEMIA
     Dosage: 1 IN 1 TOTAL
     Dates: start: 20131205, end: 20131205
  2. ESTRADIOL (ESTROGENES) [Concomitant]
  3. CALCIUM [Concomitant]
  4. COLECALCIFEROL (VITAMINE D3) [Concomitant]
  5. GESTAGENES [Concomitant]

REACTIONS (8)
  - Burning sensation [None]
  - Fatigue [None]
  - Vomiting [None]
  - Chest pain [None]
  - Back pain [None]
  - Constipation [None]
  - Hypersomnia [None]
  - Pruritus generalised [None]
